FAERS Safety Report 5108062-3 (Version None)
Quarter: 2006Q3

REPORT INFORMATION
  Report Type: 
  Country: None (occurrence: None)
  Receive Date: 20060915
  Receipt Date: 20060906
  Transmission Date: 20061208
  Serious: Yes (Other)
  Sender: FDA-Public Use
  Company Number: 2006107228

PATIENT
  Sex: Female

DRUGS (1)
  1. SUDAFED PE (PHENYLEPHRINE) [Suspect]
     Dosage: 15 TABLETS ONCE, ORAL
     Route: 048
     Dates: start: 20060906, end: 20060906

REACTIONS (4)
  - FEELING JITTERY [None]
  - HEART RATE INCREASED [None]
  - INCORRECT DOSE ADMINISTERED [None]
  - NERVOUSNESS [None]
